FAERS Safety Report 6109344-9 (Version None)
Quarter: 2009Q1

REPORT INFORMATION
  Report Type: 
  Country: None (occurrence: None)
  Receive Date: 20090306
  Receipt Date: 20090306
  Transmission Date: 20090719
  Serious: Yes (Life-Threatening, Hospitalization)
  Sender: FDA-Public Use
  Company Number: None

PATIENT
  Sex: Female
  Weight: 63.5036 kg

DRUGS (2)
  1. AVELOX [Suspect]
     Indication: SINUSITIS
     Dates: start: 20090304, end: 20090304
  2. AVELOX [Concomitant]

REACTIONS (7)
  - ERYTHEMA [None]
  - EYE SWELLING [None]
  - LIP SWELLING [None]
  - PRURITUS [None]
  - RESPIRATORY DISORDER [None]
  - SNEEZING [None]
  - SWELLING FACE [None]
